FAERS Safety Report 6324165-X (Version None)
Quarter: 2009Q3

REPORT INFORMATION
  Report Type: 
  Country: None (occurrence: None)
  Receive Date: 20090824
  Receipt Date: 20090529
  Transmission Date: 20100115
  Serious: No
  Sender: FDA-Public Use
  Company Number: US-ABBOTT-09P-163-0576774-00

PATIENT
  Sex: Male

DRUGS (4)
  1. NIASPAN [Suspect]
     Indication: DRUG USE FOR UNKNOWN INDICATION
     Dosage: TAKEN AT BEDTIME
     Route: 048
  2. ASPIRIN [Concomitant]
     Indication: DRUG USE FOR UNKNOWN INDICATION
     Dosage: TAKEN AT BEDTIME
     Route: 048
  3. UNKNOWN NSAID [Concomitant]
     Indication: MUSCULOSKELETAL DISCOMFORT
  4. UNKNOWN MUSCLE RELAXER [Concomitant]
     Indication: MUSCULOSKELETAL DISCOMFORT

REACTIONS (1)
  - NAUSEA [None]
